FAERS Safety Report 8824256 (Version 2)
Quarter: 2012Q4

REPORT INFORMATION
  Report Type: 
  Country: US (occurrence: US)
  Receive Date: 20121004
  Receipt Date: 20121012
  Transmission Date: 20130627
  Serious: Yes (Disabling)
  Sender: FDA-Public Use
  Company Number: US-009507513-1210USA000372

PATIENT
  Sex: Male

DRUGS (2)
  1. SINGULAIR [Suspect]
     Dosage: 10 mg, qd
     Route: 048
  2. AMLODIPINE [Concomitant]
     Indication: HYPERTENSION
     Dosage: 5 mg, UNK

REACTIONS (1)
  - Pain in extremity [Recovered/Resolved]
